FAERS Safety Report 8431800-9 (Version None)
Quarter: 2012Q2

REPORT INFORMATION
  Report Type: 
  Country: None (occurrence: None)
  Receive Date: 20120323
  Receipt Date: 20110906
  Transmission Date: 20120825
  Serious: Yes (Other)
  Sender: FDA-Public Use
  Company Number: 163-21880-11063756

PATIENT
  Sex: Male
  Weight: 97.3 kg

DRUGS (3)
  1. REVLIMID [Suspect]
     Indication: MULTIPLE MYELOMA
     Dosage: 25 MG, DAILY X 21 DAYS Q4 WEEKS, PO
     Route: 048
     Dates: start: 20080306, end: 20080813
  2. AREDIA [Concomitant]
  3. VELCADE [Concomitant]

REACTIONS (1)
  - CATARACT [None]
